FAERS Safety Report 21043949 (Version 1)
Quarter: 2022Q3

REPORT INFORMATION
  Report Type: Spontaneous
  Country: US (occurrence: US)
  Receive Date: 20220705
  Receipt Date: 20220705
  Transmission Date: 20221027
  Serious: Yes (Other)
  Sender: FDA-Public Use
  Company Number: US-GLAXOSMITHKLINE-US2022AMR100519

PATIENT

DRUGS (1)
  1. VALTREX [Suspect]
     Active Substance: VALACYCLOVIR HYDROCHLORIDE
     Indication: Product used for unknown indication
     Dosage: UNK

REACTIONS (10)
  - Cataract [Unknown]
  - Rash [Unknown]
  - Eye infection [Unknown]
  - Psoriasis [Unknown]
  - Abdominal discomfort [Unknown]
  - Eye pain [Unknown]
  - Syringe issue [Unknown]
  - Illness [Unknown]
  - Rash vesicular [Unknown]
  - Pain in extremity [Unknown]
